FAERS Safety Report 7701465-X (Version None)
Quarter: 2011Q3

REPORT INFORMATION
  Report Type: 
  Country: None (occurrence: None)
  Receive Date: 20110819
  Receipt Date: 20110819
  Transmission Date: 20111222
  Serious: Yes (Hospitalization)
  Sender: FDA-Public Use
  Company Number: None

PATIENT
  Age: 40 Year
  Sex: Female
  Weight: 127.41 kg

DRUGS (2)
  1. CLOZARIL [Suspect]
     Indication: CONVULSION
     Dosage: 175 MG AT BEDTIME PO
     Route: 048
     Dates: start: 20110315, end: 20110411
  2. LITHIUM CARBONATE [Suspect]
     Indication: CONVULSION
     Dosage: 900 MG AM PO
     Route: 048
     Dates: start: 20100304

REACTIONS (3)
  - SYNCOPE [None]
  - MENTAL STATUS CHANGES [None]
  - CONVULSION [None]
